FAERS Safety Report 8474469-X (Version None)
Quarter: 2012Q2

REPORT INFORMATION
  Report Type: 
  Country: None (occurrence: None)
  Receive Date: 20120628
  Receipt Date: 20120625
  Transmission Date: 20120825
  Serious: Yes (Other)
  Sender: FDA-Public Use
  Company Number: PHHY2011AR26027

PATIENT
  Sex: Female

DRUGS (1)
  1. EXELON [Suspect]
     Indication: DEMENTIA
     Dosage: 9.5 MG/ 24 HRS
     Route: 062

REACTIONS (3)
  - LOWER LIMB FRACTURE [None]
  - FALL [None]
  - APPLICATION SITE ERYTHEMA [None]
